FAERS Safety Report 7575962-4 (Version None)
Quarter: 2011Q2

REPORT INFORMATION
  Report Type: 
  Country: None (occurrence: None)
  Receive Date: 20110628
  Receipt Date: 20110623
  Transmission Date: 20111010
  Serious: Yes (Hospitalization)
  Sender: FDA-Public Use
  Company Number: GR-BRISTOL-MYERS SQUIBB COMPANY-15845852

PATIENT
  Age: 80 Year
  Sex: Male

DRUGS (2)
  1. BARACLUDE [Suspect]
     Indication: HEPATITIS B
     Dosage: 0.5MG:APR2011 TO JUN2011,REDUCED TO 1 TAB OF 0.5MG EVERY 3 DAYS(JUN TO ONG) DURATION:APP 3MONTHS
     Route: 048
     Dates: start: 20110401
  2. DUPHALAC [Concomitant]
     Route: 048

REACTIONS (1)
  - HEPATIC ENCEPHALOPATHY [None]
